FAERS Safety Report 6746086-0 (Version None)
Quarter: 2010Q2

REPORT INFORMATION
  Report Type: 
  Country: None (occurrence: None)
  Receive Date: 20100528
  Receipt Date: 20100518
  Transmission Date: 20101027
  Serious: Yes (Hospitalization)
  Sender: FDA-Public Use
  Company Number: CA-JNJFOC-20100507735

PATIENT
  Sex: Male
  Weight: 76.2 kg

DRUGS (4)
  1. REMICADE [Suspect]
     Indication: CROHN'S DISEASE
     Dosage: HELD AT PRESENT, DUE 25-MAY-2010
     Route: 042
  2. REMICADE [Suspect]
     Route: 042
  3. PREDNISONE TAB [Concomitant]
  4. STEROIDS NOS [Concomitant]

REACTIONS (3)
  - INTESTINAL RESECTION [None]
  - POST PROCEDURAL COMPLICATION [None]
  - POST PROCEDURAL INFECTION [None]
